FAERS Safety Report 18289459 (Version 1)
Quarter: 2020Q3

REPORT INFORMATION
  Report Type: Spontaneous
  Country: US (occurrence: US)
  Receive Date: 20200921
  Receipt Date: 20200921
  Transmission Date: 20201103
  Serious: No
  Sender: FDA-Public Use
  Company Number: None

PATIENT
  Sex: Male
  Weight: 101.1 kg

DRUGS (22)
  1. ACYCLOVIR. [Concomitant]
     Active Substance: ACYCLOVIR
  2. FLORASTOR [Concomitant]
     Active Substance: SACCHAROMYCES CEREVISIAE
  3. LOMOTIL [Concomitant]
     Active Substance: ATROPINE SULFATE\DIPHENOXYLATE HYDROCHLORIDE
  4. CALCIUM + VITAMIN D3 [Concomitant]
     Active Substance: CALCIUM\CHOLECALCIFEROL
  5. LANTUS SOLOSTAR [Concomitant]
     Active Substance: INSULIN GLARGINE
  6. LORATADINE. [Concomitant]
     Active Substance: LORATADINE
  7. NINLARO [Suspect]
     Active Substance: IXAZOMIB CITRATE
     Dosage: ?          OTHER FREQUENCY:WEEKLY;?
     Route: 048
     Dates: start: 20200610, end: 20200921
  8. DEXAMETHASONE. [Concomitant]
     Active Substance: DEXAMETHASONE
  9. LORAZEPAM. [Concomitant]
     Active Substance: LORAZEPAM
  10. LYRICA [Concomitant]
     Active Substance: PREGABALIN
  11. MEDROL [Concomitant]
     Active Substance: METHYLPREDNISOLONE
  12. MELATONIN [Concomitant]
     Active Substance: MELATONIN
  13. METHOCARBAMOL. [Concomitant]
     Active Substance: METHOCARBAMOL
  14. AMLODIPINE BESYLATE. [Concomitant]
     Active Substance: AMLODIPINE BESYLATE
  15. FOLIC ACID. [Concomitant]
     Active Substance: FOLIC ACID
  16. FUROSEMIDE. [Concomitant]
     Active Substance: FUROSEMIDE
  17. HUMALOG [Concomitant]
     Active Substance: INSULIN LISPRO
  18. BACTRIM [Concomitant]
     Active Substance: SULFAMETHOXAZOLE\TRIMETHOPRIM
  19. FLOVENT HFA [Concomitant]
     Active Substance: FLUTICASONE PROPIONATE
  20. ASPIR?LOW [Concomitant]
     Active Substance: ASPIRIN
  21. FLONASE [Concomitant]
     Active Substance: FLUTICASONE PROPIONATE
  22. METOPROLOL TARTRATE. [Concomitant]
     Active Substance: METOPROLOL TARTRATE

REACTIONS (1)
  - Hospice care [None]
